FAERS Safety Report 6253116-1 (Version None)
Quarter: 2009Q2

REPORT INFORMATION
  Report Type: 
  Country: None (occurrence: None)
  Receive Date: 20090519
  Receipt Date: 20090519
  Transmission Date: 20091009
  Serious: Yes (Life-Threatening, Other)
  Sender: FDA-Public Use
  Company Number: None

PATIENT
  Sex: Male
  Weight: 96.6162 kg

DRUGS (2)
  1. TREN EXTREME AMERICAN CELLULAR LABORATORY [Suspect]
     Indication: MUSCLE BUILDING THERAPY
     Dosage: 2 BID PO
     Route: 048
     Dates: start: 20090323, end: 20090413
  2. MASS XTREME SIZE PROMOTOR AMERICAN CELLULAR LABORATORY [Suspect]
     Indication: MUSCLE BUILDING THERAPY
     Dosage: PO
     Route: 048
     Dates: start: 20090323, end: 20090413

REACTIONS (8)
  - DIARRHOEA [None]
  - FATIGUE [None]
  - HEPATOTOXICITY [None]
  - IMPAIRED WORK ABILITY [None]
  - JAUNDICE [None]
  - NAUSEA [None]
  - VOMITING [None]
  - WEIGHT DECREASED [None]
